FAERS Safety Report 20862974 (Version 7)
Quarter: 2022Q4

REPORT INFORMATION
  Report Type: Report from Study
  Country: US (occurrence: US)
  Receive Date: 20220523
  Receipt Date: 20221014
  Transmission Date: 20230113
  Serious: Yes (Other)
  Sender: FDA-Public Use
  Company Number: US-PFIZER INC-202200498300

PATIENT
  Age: 54 Year
  Sex: Female

DRUGS (3)
  1. IBRANCE [Suspect]
     Active Substance: PALBOCICLIB
     Dosage: 125 MG
     Dates: start: 20220317
  2. IBRANCE [Suspect]
     Active Substance: PALBOCICLIB
     Dosage: 125 MG
     Dates: start: 20220322
  3. IBRANCE [Suspect]
     Active Substance: PALBOCICLIB
     Dosage: 125 MG

REACTIONS (59)
  - Neuropathy peripheral [Unknown]
  - Thrombocytopenia [Unknown]
  - Rash [Recovering/Resolving]
  - Sinusitis [Unknown]
  - Oral pain [Unknown]
  - Rash erythematous [Recovering/Resolving]
  - Ear infection [Unknown]
  - Pruritus [Unknown]
  - Urticaria [Unknown]
  - Stomatitis [Not Recovered/Not Resolved]
  - Depressed mood [Unknown]
  - Insomnia [Unknown]
  - White blood cell count decreased [Unknown]
  - Red blood cell count decreased [Unknown]
  - Feeling of body temperature change [Unknown]
  - Memory impairment [Unknown]
  - Miliaria [Unknown]
  - Depression [Unknown]
  - Disorganised speech [Unknown]
  - Memory impairment [Unknown]
  - Candida infection [Unknown]
  - Fatigue [Unknown]
  - Taste disorder [Unknown]
  - Hot flush [Unknown]
  - Feeling abnormal [Unknown]
  - Gingival pain [Unknown]
  - Alopecia [Unknown]
  - Dry skin [Unknown]
  - Anxiety [Unknown]
  - Tongue disorder [Unknown]
  - Decreased appetite [Unknown]
  - Nausea [Unknown]
  - Parosmia [Unknown]
  - Stomatitis [Unknown]
  - Paraesthesia [Unknown]
  - Back pain [Unknown]
  - Pain in extremity [Not Recovered/Not Resolved]
  - Hypoaesthesia [Recovering/Resolving]
  - Mobility decreased [Unknown]
  - Burning sensation [Recovering/Resolving]
  - Musculoskeletal pain [Unknown]
  - Arthralgia [Unknown]
  - Muscular weakness [Unknown]
  - Gait disturbance [Unknown]
  - Bone pain [Unknown]
  - Breast pain [Unknown]
  - Pain [Unknown]
  - Abdominal pain lower [Unknown]
  - Nodule [Unknown]
  - Dyspnoea [Unknown]
  - Headache [Unknown]
  - Malaise [Unknown]
  - Back pain [Unknown]
  - Muscle spasms [Unknown]
  - Gait disturbance [Unknown]
  - Pain [Unknown]
  - Inflammation [Unknown]
  - Dyspnoea [Unknown]
  - COVID-19 [Unknown]

NARRATIVE: CASE EVENT DATE: 20220101
